FAERS Safety Report 7418526-5 (Version None)
Quarter: 2011Q2

REPORT INFORMATION
  Report Type: 
  Country: None (occurrence: None)
  Receive Date: 20110415
  Receipt Date: 20110412
  Transmission Date: 20111010
  Serious: Yes (Other)
  Sender: FDA-Public Use
  Company Number: US-ROXANE LABORATORIES, INC.-2011-RO-00506RO

PATIENT
  Age: 73 Year
  Sex: Male

DRUGS (5)
  1. AMLODIPINE [Suspect]
     Indication: HYPERTENSION
     Dosage: 10 MG
  2. LOSARTAN POTASSIUM [Suspect]
     Indication: HYPERTENSION
     Dosage: 50 MG
  3. FUROSEMIDE [Suspect]
     Indication: HYPERTENSION
     Dosage: 80 MG
  4. HYDROCHLOROTHIAZIDE [Suspect]
     Indication: HYPERTENSION
     Dosage: 50 MG
  5. METOPROLOL [Suspect]
     Indication: HYPERTENSION
     Dosage: 100 MG

REACTIONS (3)
  - RENAL IMPAIRMENT [None]
  - OEDEMA PERIPHERAL [None]
  - HYPERTENSION [None]
